FAERS Safety Report 9730213 (Version 4)
Quarter: 2014Q2

REPORT INFORMATION
  Report Type: Spontaneous
  Country: US (occurrence: US)
  Receive Date: 20131204
  Receipt Date: 20140513
  Transmission Date: 20141212
  Serious: No
  Sender: FDA-Public Use
  Company Number: US-GILEAD-2013-0088980

PATIENT
  Sex: Female

DRUGS (3)
  1. LETAIRIS [Suspect]
     Indication: PULMONARY HYPERTENSION
     Dosage: 10 MG, QD
     Dates: start: 20101005
  2. LETAIRIS [Suspect]
     Indication: CARDIAC DISORDER
     Dosage: 10 MG, QD
     Dates: start: 20101105
  3. LETAIRIS [Suspect]
     Indication: HYPOXIA

REACTIONS (2)
  - Burning sensation [Recovered/Resolved]
  - Flushing [Recovered/Resolved]
